FAERS Safety Report 24324843 (Version 2)
Quarter: 2024Q4

REPORT INFORMATION
  Report Type: Spontaneous
  Country: ZA (occurrence: ZA)
  Receive Date: 20240916
  Receipt Date: 20241004
  Transmission Date: 20250115
  Serious: Yes (Disabling, Other)
  Sender: AMGEN
  Company Number: ZA-AMGEN-ZAFSP2024181014

PATIENT
  Age: 57 Year
  Sex: Female

DRUGS (3)
  1. PROLIA [Suspect]
     Active Substance: DENOSUMAB
     Indication: Product used for unknown indication
     Dosage: 60 MILLIGRAM, Q6MO
     Route: 058
     Dates: start: 20240830, end: 20240830
  2. ERGOCALCIFEROL [Concomitant]
     Active Substance: ERGOCALCIFEROL
     Dosage: UNK
  3. B cal k2 [Concomitant]
     Dosage: UNK

REACTIONS (7)
  - Conjunctivitis [Unknown]
  - Visual impairment [Unknown]
  - Swelling of eyelid [Unknown]
  - Scleritis [Unknown]
  - Lacrimal disorder [Unknown]
  - Macular degeneration [Unknown]
  - Cataract nuclear [Unknown]

NARRATIVE: CASE EVENT DATE: 20240901
